FAERS Safety Report 6211054-4 (Version None)
Quarter: 2009Q2

REPORT INFORMATION
  Report Type: 
  Country: None (occurrence: None)
  Receive Date: 20090528
  Receipt Date: 20090513
  Transmission Date: 20091009
  Serious: Yes (Death)
  Sender: FDA-Public Use
  Company Number: AE 2009-060

PATIENT
  Age: 53 Year
  Sex: Male

DRUGS (8)
  1. FAZACLO ODT [Suspect]
     Indication: SCHIZOPHRENIA
     Dosage: 300 MG DAILY PO
     Route: 048
     Dates: start: 20081126, end: 20090329
  2. LASIX [Concomitant]
  3. LEXAPRO [Concomitant]
  4. INVEGA [Concomitant]
  5. ZOCOR [Concomitant]
  6. NIASPAN [Concomitant]
  7. COGENTIN [Concomitant]
  8. POTASSIUM CHLORIDE [Concomitant]

REACTIONS (1)
  - MYOCARDIAL INFARCTION [None]
